FAERS Safety Report 13125419 (Version 1)
Quarter: 2017Q1

REPORT INFORMATION
  Report Type: Report from Study
  Country: ES (occurrence: ES)
  Receive Date: 20170118
  Receipt Date: 20170118
  Transmission Date: 20170428
  Serious: Yes (Hospitalization, Other)
  Sender: FDA-Public Use
  Company Number: ES-PFIZER INC-2017021447

PATIENT
  Age: 85 Year
  Sex: Female

DRUGS (5)
  1. LEXATIN /00424801/ [Interacting]
     Active Substance: BROMAZEPAM
     Dosage: 1.5 MG, 1X/DAY (0-0-1)
     Route: 048
     Dates: start: 2016
  2. SEVREDOL [Suspect]
     Active Substance: MORPHINE
     Indication: POLYNEUROPATHY
     Dosage: 10 MG, 1X/DAY (0.5-0-0)
     Route: 048
     Dates: start: 2016, end: 20161006
  3. ORFIDAL [Interacting]
     Active Substance: LORAZEPAM
     Dosage: 1 MG, 1X/DAY (0-0-1)
     Route: 048
     Dates: start: 2016
  4. DUROGESIC MATRIX [Interacting]
     Active Substance: FENTANYL
     Indication: POLYNEUROPATHY
     Dosage: 75 UG, EVERY 72 HOURS
     Route: 062
     Dates: start: 2016, end: 20161006
  5. XICIL [Suspect]
     Active Substance: GLUCOSAMINE SULFATE
     Indication: OSTEOARTHRITIS
     Dosage: 1500 MG, 1X/DAY (1-0-0)
     Route: 048
     Dates: start: 2016, end: 20161006

REACTIONS (5)
  - Depressed level of consciousness [Recovering/Resolving]
  - Toxicity to various agents [Unknown]
  - Respiratory tract infection [Unknown]
  - Respiratory failure [Recovering/Resolving]
  - Drug interaction [Recovering/Resolving]

NARRATIVE: CASE EVENT DATE: 201610
